FAERS Safety Report 5184273-6 (Version None)
Quarter: 2006Q4

REPORT INFORMATION
  Report Type: 
  Country: None (occurrence: None)
  Receive Date: 20061220
  Receipt Date: 20060914
  Transmission Date: 20070319
  Serious: Yes (Other)
  Sender: FDA-Public Use
  Company Number: PHRM2006FR02583

PATIENT
  Age: 72 Year
  Sex: Male
  Weight: 89 kg

DRUGS (6)
  1. DECAPEPTYL - SLOW RELEASE [Concomitant]
     Dosage: 11.25 MG, Q3MO
     Route: 030
  2. CELECTOL [Concomitant]
     Dosage: 200 MG DAILY
     Route: 048
  3. BURINEX [Concomitant]
     Dosage: 1 MG DAILY
  4. APROVEL [Concomitant]
     Dosage: 300 MG DAILY
  5. VASTEN [Concomitant]
     Dosage: 1 DF DAILY
  6. ZOMETA [Suspect]
     Indication: METASTASES TO BONE
     Dosage: UNK, UNK
     Route: 042
     Dates: end: 20060717

REACTIONS (4)
  - OSTEONECROSIS [None]
  - PAIN IN JAW [None]
  - SKIN ODOUR ABNORMAL [None]
  - WOUND DEBRIDEMENT [None]
